FAERS Safety Report 9391884 (Version 1)
Quarter: 2013Q3

REPORT INFORMATION
  Report Type: Spontaneous
  Country: US (occurrence: US)
  Receive Date: 20130709
  Receipt Date: 20130709
  Transmission Date: 20140515
  Serious: Yes (Life-Threatening, Hospitalization)
  Sender: FDA-Public Use
  Company Number: US-PERRIGO-13US006971

PATIENT
  Sex: 0

DRUGS (6)
  1. ACETAMINOPHEN 650MG ER 544 [Suspect]
     Indication: FOETAL EXPOSURE DURING PREGNANCY
     Dosage: 6 G, QD
     Route: 064
  2. TACROLIMUS [Concomitant]
     Indication: FOETAL EXPOSURE DURING PREGNANCY
     Dosage: UNKNOWN, UNKNOWN
     Route: 064
  3. PREDNISONE [Concomitant]
     Indication: FOETAL EXPOSURE DURING PREGNANCY
     Dosage: UNKNOWN, UNKNOWN
     Route: 064
  4. SOLUMEDROL [Concomitant]
     Indication: FOETAL EXPOSURE DURING PREGNANCY
     Dosage: UNKNOWN, UNKNOWN
     Route: 064
  5. N-ACETYLCYSTEINE [Concomitant]
     Indication: FOETAL EXPOSURE DURING PREGNANCY
     Dosage: UNKNOWN, UNKNOWN
     Route: 064
  6. SODIUM BICARBONATE [Concomitant]
     Indication: FOETAL EXPOSURE DURING PREGNANCY
     Dosage: UNKNOWN, UNKNOWN
     Route: 064

REACTIONS (8)
  - Ascites [Unknown]
  - Pericardial effusion [Unknown]
  - Brain injury [Unknown]
  - Hydrocephalus [Unknown]
  - Brain herniation [Unknown]
  - Brain compression [Unknown]
  - Liver injury [Unknown]
  - Foetal exposure during pregnancy [Unknown]
